FAERS Safety Report 4333884-6 (Version None)
Quarter: 2004Q2

REPORT INFORMATION
  Report Type: 
  Country: None (occurrence: None)
  Receive Date: 20040405
  Receipt Date: 20040405
  Transmission Date: 20050107
  Serious: Yes (Death)
  Sender: FDA-Public Use
  Company Number: None

PATIENT
  Age: 64 Year
  Sex: Female

DRUGS (1)
  1. CIPROFLOXACIN [Suspect]
     Indication: UPPER RESPIRATORY TRACT INFECTION
     Dates: start: 20031201, end: 20031214

REACTIONS (4)
  - MENTAL DISORDER [None]
  - RASH [None]
  - RESPIRATORY DISORDER [None]
  - URINE OUTPUT DECREASED [None]
